FAERS Safety Report 9766044 (Version 1)
Quarter: 2013Q4

REPORT INFORMATION
  Report Type: Spontaneous
  Country: US (occurrence: US)
  Receive Date: 20131217
  Receipt Date: 20131217
  Transmission Date: 20140711
  Serious: No
  Sender: FDA-Public Use
  Company Number: US-GLAXOSMITHKLINE-A1016220A

PATIENT
  Age: 61 Year
  Sex: Female

DRUGS (3)
  1. VOTRIENT [Suspect]
     Indication: NASAL SINUS CANCER
     Dosage: 800MG PER DAY
     Route: 048
     Dates: start: 20130109
  2. ACYCLOVIR [Concomitant]
  3. VENLAFAXINE [Concomitant]

REACTIONS (5)
  - Fatigue [Unknown]
  - Diarrhoea [Unknown]
  - Headache [Unknown]
  - Pain in jaw [Unknown]
  - Mastication disorder [Unknown]
